FAERS Safety Report 25596263 (Version 2)
Quarter: 2025Q3

REPORT INFORMATION
  Report Type: Spontaneous
  Country: EU (occurrence: EU)
  Receive Date: 20250723
  Receipt Date: 20250814
  Transmission Date: 20251021
  Serious: Yes (Other)
  Sender: TEVA
  Company Number: EU-TEVA-VS-3353140

PATIENT
  Sex: Male

DRUGS (5)
  1. ARIPIPRAZOLE [Suspect]
     Active Substance: ARIPIPRAZOLE
     Indication: Major depression
     Dosage: LONG ACTING
     Route: 065
  2. LITHIUM [Suspect]
     Active Substance: LITHIUM
     Indication: Major depression
     Dosage: LITHIUM SULPHATE
     Route: 065
  3. ESKETAMINE [Suspect]
     Active Substance: ESKETAMINE
     Indication: Major depression
     Dosage: EACH ONE ADMINISTERED IN A 5 MIN INTERVAL
     Route: 045
  4. ESKETAMINE [Suspect]
     Active Substance: ESKETAMINE
     Indication: Major depression
     Dosage: EACH ONE ADMINISTERED IN A 5 MIN INTERVAL
     Route: 045
  5. VORTIOXETINE [Suspect]
     Active Substance: VORTIOXETINE
     Indication: Major depression
     Route: 065

REACTIONS (2)
  - Drug ineffective [Unknown]
  - Dissociation [Unknown]
